FAERS Safety Report 10244501 (Version 1)
Quarter: 2014Q2

REPORT INFORMATION
  Report Type: Spontaneous
  Country: DE (occurrence: DE)
  Receive Date: 20140618
  Receipt Date: 20140618
  Transmission Date: 20141212
  Serious: Yes (Hospitalization)
  Sender: FDA-Public Use
  Company Number: DE-GLAXOSMITHKLINE-D0084370A

PATIENT
  Age: 52 Year
  Sex: Female
  Weight: 80 kg

DRUGS (6)
  1. BELIMUMAB [Suspect]
     Indication: SYSTEMIC LUPUS ERYTHEMATOSUS
     Dosage: 800MG PER DAY
     Route: 042
     Dates: start: 20130516, end: 20140327
  2. PREDNISON [Suspect]
     Dosage: 7MG PER DAY
     Route: 048
  3. BISOPROLOL [Concomitant]
     Dosage: 2.5MG PER DAY
     Route: 048
  4. BISOPROLOL [Concomitant]
     Dosage: 2.5MG PER DAY
     Route: 048
  5. DEKRISTOL [Concomitant]
     Dosage: 20000IU PER DAY
     Route: 048
  6. UNKNOWN MEDICATION [Concomitant]
     Route: 065
     Dates: start: 201210

REACTIONS (2)
  - Transient ischaemic attack [Recovered/Resolved]
  - Embolism [Recovered/Resolved]
